FAERS Safety Report 4696648-X (Version None)
Quarter: 2005Q2

REPORT INFORMATION
  Report Type: 
  Country: None (occurrence: None)
  Receive Date: 20050616
  Receipt Date: 20050511
  Transmission Date: 20051028
  Serious: No
  Sender: FDA-Public Use
  Company Number: BDI-007174

PATIENT
  Age: 32 Year
  Sex: Male

DRUGS (1)
  1. MULTIHANCE [Suspect]
     Indication: NUCLEAR MAGNETIC RESONANCE IMAGING
     Dosage: 20 ML ONCE IV
     Route: 042
     Dates: start: 20050329, end: 20050329

REACTIONS (6)
  - DISCOMFORT [None]
  - EMBOLISM VENOUS [None]
  - MYALGIA [None]
  - VEIN DISCOLOURATION [None]
  - VEIN DISORDER [None]
  - VENOUS OCCLUSION [None]
